FAERS Safety Report 12713434 (Version 1)
Quarter: 2016Q3

REPORT INFORMATION
  Report Type: Spontaneous
  Country: US (occurrence: US)
  Receive Date: 20160903
  Receipt Date: 20160903
  Transmission Date: 20161109
  Serious: Yes (Other)
  Sender: FDA-Public Use
  Company Number: US-AUROBINDO-AUR-APL-2016-11179

PATIENT
  Age: 32 Year
  Sex: Female

DRUGS (3)
  1. NATALIZUMAB [Suspect]
     Active Substance: NATALIZUMAB
     Indication: PRODUCT USED FOR UNKNOWN INDICATION
     Route: 065
  2. GLATIRAMER ACETATE. [Concomitant]
     Active Substance: GLATIRAMER ACETATE
     Indication: PRODUCT USED FOR UNKNOWN INDICATION
     Route: 065
  3. METHYLPREDNISOLONE. [Suspect]
     Active Substance: METHYLPREDNISOLONE
     Indication: MULTIPLE SCLEROSIS
     Dosage: 1000 MG A DAY FOR 3 DAYS
     Route: 065

REACTIONS (9)
  - Necrotising retinitis [Recovering/Resolving]
  - Eye pain [Recovering/Resolving]
  - Keratic precipitates [Recovering/Resolving]
  - Arteritis [Recovering/Resolving]
  - Retinal haemorrhage [Recovering/Resolving]
  - Vitritis [Recovering/Resolving]
  - Retinitis [Recovering/Resolving]
  - Hemiparesis [Recovering/Resolving]
  - Vision blurred [Recovering/Resolving]
